FAERS Safety Report 8947959 (Version 1)
Quarter: 2012Q4

REPORT INFORMATION
  Report Type: Spontaneous
  Country: US (occurrence: None)
  Receive Date: 20121203
  Receipt Date: 20121203
  Transmission Date: 20130627
  Serious: Yes (Other)
  Sender: FDA-Public Use
  Company Number: None

PATIENT
  Age: 60 Year
  Sex: Female
  Weight: 55.34 kg

DRUGS (2)
  1. HYDROCODONE [Suspect]
     Indication: NEURITIS
     Dates: start: 20121029, end: 20121129
  2. HYDROCODONE [Suspect]
     Indication: NEURALGIA
     Dates: start: 20121029, end: 20121129

REACTIONS (2)
  - Gastric haemorrhage [None]
  - Nausea [None]
